FAERS Safety Report 21220821 (Version 1)
Quarter: 2022Q3

REPORT INFORMATION
  Report Type: Report from Study
  Country: GB (occurrence: GB)
  Receive Date: 20220817
  Receipt Date: 20220817
  Transmission Date: 20221026
  Serious: Yes (Other)
  Sender: FDA-Public Use
  Company Number: GB-NOVARTISPH-NVSC2022GB141459

PATIENT
  Age: 69 Year
  Sex: Female

DRUGS (1)
  1. KISQALI [Suspect]
     Active Substance: RIBOCICLIB
     Indication: Breast cancer
     Dosage: 300 MG, QD
     Route: 048
     Dates: start: 201911

REACTIONS (2)
  - Renal impairment [Recovering/Resolving]
  - Vitamin B12 decreased [Unknown]

NARRATIVE: CASE EVENT DATE: 20220501
